FAERS Safety Report 8452174-3 (Version None)
Quarter: 2012Q2

REPORT INFORMATION
  Report Type: 
  Country: None (occurrence: None)
  Receive Date: 20120620
  Receipt Date: 20120613
  Transmission Date: 20120825
  Serious: Yes (Hospitalization)
  Sender: FDA-Public Use
  Company Number: BR-GLAXOSMITHKLINE-B0806914A

PATIENT
  Sex: Male
  Weight: 85 kg

DRUGS (5)
  1. METOPROLOL SUCCINATE [Concomitant]
  2. PROPAFENONE HCL [Suspect]
     Indication: ARRHYTHMIA
     Dosage: 300MG TWICE PER DAY
     Route: 048
     Dates: start: 20120424
  3. HYDROXYCHLOROQUINE SULFATE [Concomitant]
     Indication: MALARIA PROPHYLAXIS
     Dosage: 400MG PER DAY
     Dates: start: 20010101
  4. COUMADIN [Concomitant]
     Indication: THROMBOSIS PROPHYLAXIS
     Dosage: 3.5MG PER DAY
     Dates: start: 19960101
  5. ASPIRIN [Concomitant]
     Indication: THROMBOSIS PROPHYLAXIS
     Dosage: 100MG PER DAY
     Dates: start: 20050101

REACTIONS (3)
  - ARRHYTHMIA [None]
  - VIRAL INFECTION [None]
  - THYROID DISORDER [None]
